FAERS Safety Report 4443973-3 (Version None)
Quarter: 2004Q3

REPORT INFORMATION
  Report Type: 
  Country: None (occurrence: None)
  Receive Date: 20040729
  Receipt Date: 20040127
  Transmission Date: 20050211
  Serious: Yes (Hospitalization)
  Sender: FDA-Public Use
  Company Number: US-JNJFOC-20040105734

PATIENT
  Age: 17 Year
  Sex: Male

DRUGS (2)
  1. RISPERDAL CONSTA [Suspect]
     Indication: SCHIZOPHRENIA
     Dosage: 25 MG, INTRA-MUSCULAR
     Route: 030
     Dates: start: 20031222
  2. COGENTIN [Concomitant]

REACTIONS (3)
  - MEDICATION ERROR [None]
  - MUSCULOSKELETAL STIFFNESS [None]
  - PSYCHOMOTOR SKILLS IMPAIRED [None]
